FAERS Safety Report 15719099 (Version 2)
Quarter: 2018Q4

REPORT INFORMATION
  Report Type: Spontaneous
  Country: IT (occurrence: IT)
  Receive Date: 20181213
  Receipt Date: 20181217
  Transmission Date: 20190205
  Serious: No
  Sender: FDA-Public Use
  Company Number: IT-PFIZER INC-18170

PATIENT
  Age: 66 Year
  Sex: Male

DRUGS (3)
  1. FLUOROURACIL. [Suspect]
     Active Substance: FLUOROURACIL
     Indication: COLON CANCER METASTATIC
     Dosage: DAYS 1 AND 2, EVERY 14 DAYS, 6CYCLE, FREQ: PER_CYCLE
     Route: 042
  2. CALCIUM FOLINATE [Suspect]
     Active Substance: LEUCOVORIN CALCIUM
     Indication: COLON CANCER METASTATIC
     Dosage: DAYS 1 AND 2, EVERY 14 DAYS, 6 CYCLES, FREQ: PER_CYCLE
     Route: 042
  3. OXALIPLATIN. [Suspect]
     Active Substance: OXALIPLATIN
     Indication: COLON CANCER METASTATIC
     Dosage: DAY 1, EVERY 14 DAYS , 6 CYCLES, FREQ: PER_CYCLE
     Route: 042

REACTIONS (1)
  - Lymphoid tissue hyperplasia [Recovered/Resolved]
